FAERS Safety Report 5425277-5 (Version None)
Quarter: 2007Q3

REPORT INFORMATION
  Report Type: 
  Country: None (occurrence: None)
  Receive Date: 20070824
  Receipt Date: 20070814
  Transmission Date: 20080115
  Serious: Yes (Other)
  Sender: FDA-Public Use
  Company Number: FR-PFIZER INC-2007047299

PATIENT
  Sex: Male
  Weight: 88 kg

DRUGS (4)
  1. CHAMPIX [Suspect]
     Indication: SMOKING CESSATION THERAPY
  2. LOSARTAN POTASSIUM AND HYDROCHLOROTHIAZIDE [Concomitant]
     Indication: HYPERTENSION
  3. BROMAZEPAM [Concomitant]
     Route: 048
  4. GAVISCON [Concomitant]

REACTIONS (9)
  - ABNORMAL DREAMS [None]
  - AGITATION [None]
  - BLOOD GLUCOSE INCREASED [None]
  - DYSPNOEA [None]
  - HEADACHE [None]
  - HYPERTENSION [None]
  - INSOMNIA [None]
  - NAUSEA [None]
  - WEIGHT INCREASED [None]
